FAERS Safety Report 8033350-0 (Version None)
Quarter: 2012Q1

REPORT INFORMATION
  Report Type: 
  Country: None (occurrence: None)
  Receive Date: 20120110
  Receipt Date: 20120105
  Transmission Date: 20120608
  Serious: No
  Sender: FDA-Public Use
  Company Number: US-PFIZER INC-2011310267

PATIENT
  Sex: Female
  Weight: 62.585 kg

DRUGS (3)
  1. PREMARIN [Suspect]
     Indication: OESTROGEN REPLACEMENT THERAPY
     Dosage: UNK
     Route: 048
  2. PROZAC [Concomitant]
     Indication: ANXIETY
     Dosage: 10 MG, DAILY
  3. SUMATRIPTAN [Concomitant]
     Indication: MIGRAINE
     Dosage: 100 MG, 3X/MONTH

REACTIONS (1)
  - DRUG INEFFECTIVE [None]
